FAERS Safety Report 8482634-0 (Version None)
Quarter: 2012Q3

REPORT INFORMATION
  Report Type: 
  Country: None (occurrence: None)
  Receive Date: 20120702
  Receipt Date: 20120627
  Transmission Date: 20120928
  Serious: Yes (Disabling)
  Sender: FDA-Public Use
  Company Number: US-MERCK-1206USA04993

PATIENT
  Sex: Male

DRUGS (1)
  1. PROPECIA [Suspect]
     Indication: ALOPECIA
     Route: 048
     Dates: start: 20060101, end: 20120501

REACTIONS (21)
  - DRY SKIN [None]
  - MUSCLE ATROPHY [None]
  - GENITAL DISORDER MALE [None]
  - GENITAL HYPOAESTHESIA [None]
  - SEXUAL DYSFUNCTION [None]
  - PAIN [None]
  - MUSCLE TIGHTNESS [None]
  - PANIC ATTACK [None]
  - INSOMNIA [None]
  - LOSS OF LIBIDO [None]
  - WEIGHT DECREASED [None]
  - BREAST PAIN [None]
  - HERMAPHRODITISM [None]
  - RASH [None]
  - POLLAKIURIA [None]
  - FATIGUE [None]
  - IMPAIRED WORK ABILITY [None]
  - ARTHRALGIA [None]
  - EMOTIONAL DISORDER [None]
  - HOT FLUSH [None]
  - SENSORY LOSS [None]
